FAERS Safety Report 7175681 (Version 2)
Quarter: 2013Q1

REPORT INFORMATION
  Report Type: Spontaneous
  Country: NO (occurrence: None)
  Receive Date: 20091030
  Receipt Date: 20130118
  Transmission Date: 20140127
  Serious: Yes (Other)
  Sender: FDA-Public Use
  Company Number: 2009AP004288

PATIENT
  Sex: Female

DRUGS (2)
  1. CARBAMAZEPINE [Suspect]
     Dosage: 1200 MG; QD
  2. LEVETIRACETAM [Suspect]
     Dosage: 3000 MG; QD; 2500 MG; QD

REACTIONS (4)
  - COMPLEX PARTIAL SEIZURES [None]
  - SIMPLE PARTIAL SEIZURES [None]
  - MATERNAL EXPOSURE DURING PREGNANCY [None]
  - DRUG LEVEL DECREASED [None]
